APPROVED DRUG PRODUCT: GLUCOTROL
Active Ingredient: GLIPIZIDE
Strength: 10MG **Federal Register determination that product was not discontinued or withdrawn for safety or effectiveness reasons**
Dosage Form/Route: TABLET;ORAL
Application: N017783 | Product #002
Applicant: PFIZER INC
Approved: May 8, 1984 | RLD: Yes | RS: No | Type: DISCN